FAERS Safety Report 5633382-3 (Version None)
Quarter: 2008Q1

REPORT INFORMATION
  Report Type: 
  Country: None (occurrence: None)
  Receive Date: 20080221
  Receipt Date: 20080212
  Transmission Date: 20080703
  Serious: Yes (Other)
  Sender: FDA-Public Use
  Company Number: FR-ASTRAZENECA-2008CG00239

PATIENT
  Age: 25 Year
  Sex: Male

DRUGS (6)
  1. SYMBICORT [Suspect]
     Indication: ASTHMA
     Dosage: 200/6 MCG, 1 INHALATION BID
     Route: 055
  2. BRICANYL [Suspect]
     Indication: ASTHMA
     Route: 055
  3. SINGULAIR [Suspect]
     Indication: ASTHMA
     Route: 048
     Dates: start: 20060801, end: 20070915
  4. NASACORT [Suspect]
     Indication: ASTHMA
     Route: 045
  5. XANAX [Concomitant]
     Indication: ANXIETY
     Route: 048
  6. XYZAL [Concomitant]
     Indication: RHINITIS ALLERGIC
     Route: 048

REACTIONS (3)
  - AGGRESSION [None]
  - AGITATION [None]
  - INSOMNIA [None]
